FAERS Safety Report 9158928 (Version 1)
Quarter: 2013Q1

REPORT INFORMATION
  Report Type: Spontaneous
  Country: GB (occurrence: None)
  Receive Date: 20130213
  Receipt Date: 20130213
  Transmission Date: 20140127
  Serious: Yes (Other)
  Sender: FDA-Public Use
  Company Number: 2013-02303

PATIENT
  Age: 41 Year
  Sex: Female
  Weight: 70 kg

DRUGS (1)
  1. SERTRALINE HYDROCHLORIDE [Suspect]
     Indication: POST-TRAUMATIC STRESS DISORDER
     Route: 048
     Dates: start: 20111118, end: 20111201

REACTIONS (12)
  - Dyspnoea [None]
  - Asphyxia [None]
  - Dry mouth [None]
  - Decreased appetite [None]
  - Weight decreased [None]
  - Pain [None]
  - Cough [None]
  - Poor quality sleep [None]
  - Emotional distress [None]
  - Abnormal dreams [None]
  - Drug ineffective [None]
  - Epistaxis [None]
